FAERS Safety Report 5128787-3 (Version None)
Quarter: 2006Q4

REPORT INFORMATION
  Report Type: 
  Country: None (occurrence: None)
  Receive Date: 20061017
  Receipt Date: 20050826
  Transmission Date: 20070319
  Serious: Yes (Other)
  Sender: FDA-Public Use
  Company Number: BE-BRISTOL-MYERS SQUIBB COMPANY-13093950

PATIENT
  Age: 84 Year
  Sex: Male
  Weight: 75 kg

DRUGS (5)
  1. IRBESARTAN [Suspect]
     Indication: HYPERTENSION
     Dates: start: 20041110
  2. BLINDED: PLACEBO [Suspect]
     Indication: HYPERTENSION
     Dates: start: 20041110
  3. CLOPIDOGREL BISULFATE [Suspect]
     Indication: PROPHYLAXIS
     Dates: start: 20041110, end: 20050128
  4. ASPIRIN [Suspect]
     Indication: PROPHYLAXIS
     Dates: start: 20041110, end: 20050128
  5. ACENOCOUMAROL [Suspect]
     Indication: PROPHYLAXIS

REACTIONS (2)
  - INTERNATIONAL NORMALISED RATIO INCREASED [None]
  - OVERDOSE [None]
